FAERS Safety Report 9511841 (Version 5)
Quarter: 2014Q1

REPORT INFORMATION
  Report Type: Report from Study
  Country: DE (occurrence: DE)
  Receive Date: 20130910
  Receipt Date: 20140203
  Transmission Date: 20141002
  Serious: Yes (Other)
  Sender: FDA-Public Use
  Company Number: DE-B.I. PHARMACEUTICALS,INC./RIDGEFIELD-2013-BI-22580II

PATIENT
  Age: 43 Year
  Sex: Female
  Weight: 100 kg

DRUGS (4)
  1. BIBW 2992 [Suspect]
     Indication: BREAST CANCER
     Dosage: 20 MG
     Route: 048
     Dates: start: 20130529, end: 20130728
  2. TRASTUZUMAB [Suspect]
     Indication: BREAST CANCER
     Dosage: FORMULATION: INFUSION;STRENTH: 8 MG/KG;  DOSE: 8 MG/KG
     Route: 042
     Dates: start: 20130529, end: 20130821
  3. TRASTUZUMAB [Suspect]
     Dates: start: 20130822
  4. TAXOL [Concomitant]
     Indication: BREAST CANCER
     Dosage: FORMULATION: INFUSION;DAILY DOSE: 80 MG/M2
     Route: 042
     Dates: start: 20130710, end: 20130821

REACTIONS (1)
  - Ejection fraction decreased [Unknown]
